FAERS Safety Report 5542363-X (Version None)
Quarter: 2007Q4

REPORT INFORMATION
  Report Type: 
  Country: None (occurrence: None)
  Receive Date: 20071129
  Receipt Date: 20070409
  Transmission Date: 20080405
  Serious: Yes (Other)
  Sender: FDA-Public Use
  Company Number: US200704001912

PATIENT
  Sex: Female

DRUGS (1)
  1. ZYPREXA [Suspect]
     Dosage: 10 MG
     Dates: start: 20000701, end: 20020101

REACTIONS (4)
  - BLOOD CHOLESTEROL INCREASED [None]
  - INCREASED APPETITE [None]
  - MYALGIA [None]
  - WEIGHT INCREASED [None]
